FAERS Safety Report 6058253-2 (Version None)
Quarter: 2009Q1

REPORT INFORMATION
  Report Type: 
  Country: None (occurrence: None)
  Receive Date: 20090128
  Receipt Date: 20090128
  Transmission Date: 20090719
  Serious: Yes (Other)
  Sender: FDA-Public Use
  Company Number: None

PATIENT
  Age: 79 Year
  Sex: Female

DRUGS (1)
  1. PHENOBARBITAL, BAXTER, 130MG/ML [Suspect]
     Indication: CONVULSION PROPHYLAXIS
     Dosage: 130MG Q12H IM
     Route: 030
     Dates: start: 20090121, end: 20090126

REACTIONS (3)
  - PRURITUS [None]
  - RASH [None]
  - WHEEZING [None]
